FAERS Safety Report 22369074 (Version 1)
Quarter: 2023Q2

REPORT INFORMATION
  Report Type: Spontaneous
  Country: CN (occurrence: CN)
  Receive Date: 20230525
  Receipt Date: 20230525
  Transmission Date: 20230721
  Serious: Yes (Hospitalization, Other)
  Sender: FDA-Public Use
  Company Number: CN-PAIPHARMA-2023-CN-000297

PATIENT
  Age: 64 Year
  Sex: Male

DRUGS (4)
  1. AMANTADINE [Suspect]
     Active Substance: AMANTADINE
     Indication: Dyskinesia
     Dosage: 100 MG TWICE DAILY
     Route: 048
     Dates: start: 20210303
  2. Dopaserazide [Concomitant]
     Dosage: 187.5 MG 3 TIMES DAILY
  3. PIRIBEDIL [Concomitant]
     Active Substance: PIRIBEDIL
     Dosage: 50 MG 3 TIMES DAILY
     Route: 048
  4. SELEGILINE [Concomitant]
     Active Substance: SELEGILINE
     Dosage: 5 MG TWICE DAILY

REACTIONS (2)
  - Inappropriate antidiuretic hormone secretion [Recovered/Resolved]
  - Hyponatraemia [Recovered/Resolved]
